FAERS Safety Report 7355579-7 (Version None)
Quarter: 2011Q1

REPORT INFORMATION
  Report Type: 
  Country: None (occurrence: None)
  Receive Date: 20110316
  Receipt Date: 20110309
  Transmission Date: 20110831
  Serious: Yes (Death)
  Sender: FDA-Public Use
  Company Number: B0697449A

PATIENT
  Age: 70 Year
  Sex: Male

DRUGS (3)
  1. KARDEGIC [Suspect]
     Route: 065
  2. ARIXTRA [Suspect]
     Indication: PULMONARY EMBOLISM
     Dosage: 7.5MG PER DAY
     Route: 058
     Dates: end: 20101201
  3. PREVISCAN [Suspect]
     Route: 065

REACTIONS (3)
  - INTRA-ABDOMINAL HAEMATOMA [None]
  - UNDERDOSE [None]
  - ANAEMIA [None]
